FAERS Safety Report 17072687 (Version 10)
Quarter: 2020Q2

REPORT INFORMATION
  Report Type: Spontaneous
  Country: US (occurrence: US)
  Receive Date: 20191125
  Receipt Date: 20200406
  Transmission Date: 20200713
  Serious: Yes (Other)
  Sender: FDA-Public Use
  Company Number: US-PFIZER INC-2019504197

PATIENT
  Age: 70 Year
  Sex: Female

DRUGS (8)
  1. CELEBREX [Concomitant]
     Active Substance: CELECOXIB
     Indication: KNEE ARTHROPLASTY
     Dosage: 1 DF, 1X/DAY
     Dates: start: 2011, end: 2011
  2. HCTZ [Concomitant]
     Active Substance: HYDROCHLOROTHIAZIDE
     Dosage: 2 DF, DAILY
     Dates: start: 2011
  3. CELEBREX [Concomitant]
     Active Substance: CELECOXIB
     Dosage: 75 MG, DAILY; ( 15 MG 5XDAY)
     Dates: start: 2011
  4. HCTZ [Concomitant]
     Active Substance: HYDROCHLOROTHIAZIDE
     Dosage: 25 MG, 1X/DAY
  5. BABY ASPIRIN [Concomitant]
     Active Substance: ASPIRIN
     Dosage: 1 DF, DAILY (LOW DOSE 1 PER DAY)
  6. NARDIL [Suspect]
     Active Substance: PHENELZINE SULFATE
     Indication: DEPRESSION
  7. NARDIL [Suspect]
     Active Substance: PHENELZINE SULFATE
     Indication: LOSS OF PERSONAL INDEPENDENCE IN DAILY ACTIVITIES
     Dosage: 15 MG, 4X/DAY AS NEEDED
  8. NARDIL [Suspect]
     Active Substance: PHENELZINE SULFATE
     Indication: MALAISE

REACTIONS (3)
  - Panic attack [Recovered/Resolved]
  - Affective disorder [Unknown]
  - Emotional disorder [Unknown]
